FAERS Safety Report 5311938-5 (Version None)
Quarter: 2007Q2

REPORT INFORMATION
  Report Type: 
  Country: None (occurrence: None)
  Receive Date: 20070430
  Receipt Date: 20060926
  Transmission Date: 20071010
  Serious: No
  Sender: FDA-Public Use
  Company Number: 2006UW05884

PATIENT
  Age: 13425 Day
  Sex: Female
  Weight: 59 kg

DRUGS (5)
  1. NEXIUM [Suspect]
     Indication: FLATULENCE
     Route: 048
     Dates: start: 20060403
  2. ZITHROMAX [Concomitant]
  3. BENADRYL [Concomitant]
  4. CLARITHROMYCIN [Concomitant]
     Indication: GASTRITIS BACTERIAL
  5. METRONIDAZOLE [Concomitant]
     Indication: GASTRITIS BACTERIAL

REACTIONS (7)
  - ABDOMINAL PAIN [None]
  - ANXIETY [None]
  - CONSTIPATION [None]
  - ERUCTATION [None]
  - GASTROINTESTINAL PAIN [None]
  - INSOMNIA [None]
  - STOMACH DISCOMFORT [None]
